FAERS Safety Report 12412388 (Version 1)
Quarter: 2016Q2

REPORT INFORMATION
  Report Type: Spontaneous
  Country: US (occurrence: US)
  Receive Date: 20160527
  Receipt Date: 20160527
  Transmission Date: 20160815
  Serious: No
  Sender: FDA-Public Use
  Company Number: US-BAYER-2016-094992

PATIENT
  Age: 68 Year
  Sex: Female

DRUGS (2)
  1. CLIMARA PRO [Suspect]
     Active Substance: ESTRADIOL\LEVONORGESTREL
     Indication: INSOMNIA
  2. CLIMARA PRO [Suspect]
     Active Substance: ESTRADIOL\LEVONORGESTREL
     Indication: HOT FLUSH
     Dosage: UNK
     Route: 062

REACTIONS (5)
  - Application site reaction [None]
  - Product quality issue [None]
  - Product adhesion issue [None]
  - Blister [None]
  - Application site erythema [None]

NARRATIVE: CASE EVENT DATE: 201605
